APPROVED DRUG PRODUCT: PRAMIPEXOLE DIHYDROCHLORIDE
Active Ingredient: PRAMIPEXOLE DIHYDROCHLORIDE
Strength: 1.5MG
Dosage Form/Route: TABLET;ORAL
Application: A078920 | Product #005 | TE Code: AB
Applicant: ZYDUS PHARMACEUTICALS USA INC
Approved: Jul 6, 2010 | RLD: No | RS: No | Type: RX